FAERS Safety Report 9219723 (Version 1)
Quarter: 2013Q2

REPORT INFORMATION
  Report Type: Spontaneous
  Country: MX (occurrence: MX)
  Receive Date: 20130409
  Receipt Date: 20130409
  Transmission Date: 20140414
  Serious: Yes (Death, Life-Threatening, Hospitalization, Disabling)
  Sender: FDA-Public Use
  Company Number: MX-ROCHE-1205986

PATIENT
  Age: 50 Year
  Sex: Male
  Weight: 65 kg

DRUGS (2)
  1. ACTILYSE [Suspect]
     Indication: CEREBRAL INFARCTION
     Route: 042
     Dates: start: 201104, end: 201104
  2. ASPIRIN [Concomitant]

REACTIONS (1)
  - Guillain-Barre syndrome [Fatal]
